FAERS Safety Report 24147500 (Version 1)
Quarter: 2024Q3

REPORT INFORMATION
  Report Type: Report from Study
  Country: AU (occurrence: AU)
  Receive Date: 20240729
  Receipt Date: 20240729
  Transmission Date: 20241016
  Serious: No
  Sender: ROCHE
  Company Number: AU-ROCHE-10000004187

PATIENT
  Age: 61 Year
  Sex: Male

DRUGS (3)
  1. OCREVUS [Suspect]
     Active Substance: OCRELIZUMAB
     Indication: Multiple sclerosis
     Route: 042
  2. OCREVUS [Suspect]
     Active Substance: OCRELIZUMAB
     Route: 042
     Dates: start: 20240725
  3. IBUPROFEN [Concomitant]
     Active Substance: IBUPROFEN

REACTIONS (9)
  - Fatigue [Recovered/Resolved]
  - Oral herpes [Recovering/Resolving]
  - Fall [Unknown]
  - Arthralgia [Recovering/Resolving]
  - Coordination abnormal [Unknown]
  - Hypoaesthesia [Unknown]
  - Muscular weakness [Unknown]
  - Fine motor skill dysfunction [Unknown]
  - Visual impairment [Unknown]

NARRATIVE: CASE EVENT DATE: 20240725
